FAERS Safety Report 22653432 (Version 1)
Quarter: 2023Q2

REPORT INFORMATION
  Report Type: Spontaneous
  Country: CN (occurrence: CN)
  Receive Date: 20230629
  Receipt Date: 20230629
  Transmission Date: 20230722
  Serious: Yes (Hospitalization)
  Sender: FDA-Public Use
  Company Number: CN-TEVA-2023-CN-2900336

PATIENT
  Age: 49 Year
  Sex: Male

DRUGS (7)
  1. CLOPIDOGREL [Interacting]
     Active Substance: CLOPIDOGREL BISULFATE
     Indication: Antiplatelet therapy
     Dosage: RECEIVED CLOPIDOGREL ONCE PER NIGHT
     Route: 048
     Dates: start: 202104
  2. REPAGLINIDE [Interacting]
     Active Substance: REPAGLINIDE
     Indication: Type 2 diabetes mellitus
     Dosage: RECEIVED REPAGLINIDE 1MG IN THE MORNING, 2MG IN THE AFTERNOON AND 1MG IN THE EVENING
     Route: 048
  3. REPAGLINIDE [Interacting]
     Active Substance: REPAGLINIDE
     Dosage: RECEIVED REPAGLINIDE 1MG IN THE MORNING AND 0.5MG IN THE AFTERNOON
     Route: 048
     Dates: start: 202104
  4. FELODIPINE [Concomitant]
     Active Substance: FELODIPINE
     Indication: Hypertension
     Dosage: RECEIVED FELODIPINE, 3 TIMES DAILY
     Route: 065
  5. UROKINASE [Concomitant]
     Active Substance: UROKINASE
     Indication: Thrombolysis
     Route: 042
     Dates: start: 202104
  6. Shuxuetong [Concomitant]
     Indication: Product used for unknown indication
     Route: 065
     Dates: start: 202104
  7. ATORVASTATIN CALCIUM [Concomitant]
     Active Substance: ATORVASTATIN CALCIUM
     Indication: Hypertension
     Route: 065
     Dates: start: 202104

REACTIONS (2)
  - Hypoglycaemia [Recovered/Resolved]
  - Drug interaction [Unknown]

NARRATIVE: CASE EVENT DATE: 20210401
